FAERS Safety Report 8042444-5 (Version None)
Quarter: 2012Q1

REPORT INFORMATION
  Report Type: 
  Country: None (occurrence: None)
  Receive Date: 20120112
  Receipt Date: 20111228
  Transmission Date: 20120608
  Serious: Yes (Death)
  Sender: FDA-Public Use
  Company Number: US-UCBSA-048850

PATIENT
  Age: 65 Year
  Sex: Female

DRUGS (6)
  1. PROPAFENONE HCL [Suspect]
  2. CHLORDIAZEPOXIDE [Suspect]
  3. OMEPRAZOLE [Suspect]
  4. PROPRANOLOL [Suspect]
  5. IBUPROFEN [Suspect]
  6. ETHANOL [Suspect]

REACTIONS (1)
  - COMPLETED SUICIDE [None]
